FAERS Safety Report 9785703 (Version 1)
Quarter: 2013Q4

REPORT INFORMATION
  Report Type: Spontaneous
  Country: JP (occurrence: JP)
  Receive Date: 20131227
  Receipt Date: 20131227
  Transmission Date: 20140711
  Serious: Yes (Other)
  Sender: FDA-Public Use
  Company Number: JP-BAYER-2013-157497

PATIENT
  Sex: Male

DRUGS (1)
  1. LEVITRA [Suspect]
     Route: 048

REACTIONS (1)
  - Herpes virus infection [None]
